FAERS Safety Report 11528803 (Version 2)
Quarter: 2015Q4

REPORT INFORMATION
  Report Type: Spontaneous
  Country: US (occurrence: US)
  Receive Date: 20150921
  Receipt Date: 20151006
  Transmission Date: 20160304
  Serious: No
  Sender: FDA-Public Use
  Company Number: US-PFIZER INC-2015307156

PATIENT
  Age: 68 Year
  Sex: Female
  Weight: 59 kg

DRUGS (2)
  1. ATENOLOL. [Concomitant]
     Active Substance: ATENOLOL
     Indication: HYPERTENSION
     Dosage: 25 MG, 2X/DAY
     Route: 048
  2. AROMASIN [Suspect]
     Active Substance: EXEMESTANE
     Indication: BREAST CANCER
     Dosage: 25 MG, 1X/DAY
     Route: 048
     Dates: start: 20150707, end: 201508

REACTIONS (9)
  - Malaise [Recovering/Resolving]
  - Drug intolerance [Recovering/Resolving]
  - Bone pain [Recovering/Resolving]
  - Myalgia [Recovering/Resolving]
  - Gait disturbance [Recovered/Resolved]
  - Dyspnoea [Recovering/Resolving]
  - Neck pain [Recovering/Resolving]
  - Joint range of motion decreased [Recovering/Resolving]
  - Arthralgia [Recovering/Resolving]
